FAERS Safety Report 19394114 (Version 1)
Quarter: 2021Q2

REPORT INFORMATION
  Report Type: Spontaneous
  Country: US (occurrence: US)
  Receive Date: 20210608
  Receipt Date: 20210608
  Transmission Date: 20210717
  Serious: Yes (Hospitalization, Disabling, Other)
  Sender: FDA-Public Use
  Company Number: None

PATIENT
  Age: 50 Year
  Sex: Female
  Weight: 70.31 kg

DRUGS (6)
  1. CLONAZEPAM (GENERIC KLONOPIN) [Suspect]
     Active Substance: CLONAZEPAM
     Indication: GENERALISED ANXIETY DISORDER
     Dosage: ?          QUANTITY:1 DF DOSAGE FORM;?
     Route: 048
     Dates: start: 20040101, end: 20190901
  2. CBD OIL [Concomitant]
     Active Substance: CANNABIDIOL\HERBALS
  3. MELATONIN [Concomitant]
     Active Substance: MELATONIN
  4. TRAZODONE [Concomitant]
     Active Substance: TRAZODONE HYDROCHLORIDE
  5. MULTI?VITAMIN/MINERALS [Concomitant]
  6. VALERIAN [Concomitant]
     Active Substance: VALERIAN

REACTIONS (5)
  - Suicidal ideation [None]
  - Insomnia [None]
  - Withdrawal syndrome [None]
  - Depression [None]
  - Anxiety [None]

NARRATIVE: CASE EVENT DATE: 20180115
